FAERS Safety Report 7626736 (Version 2)
Quarter: 2017Q2

REPORT INFORMATION
  Report Type: Spontaneous
  Country: US (occurrence: US)
  Receive Date: 20101013
  Receipt Date: 20170601
  Transmission Date: 20170830
  Serious: No
  Sender: FDA-Public Use
  Company Number: US-ASTRAZENECA-2009SE23066

PATIENT
  Sex: Female

DRUGS (1)
  1. SYMBICORT [Suspect]
     Active Substance: BUDESONIDE\FORMOTEROL FUMARATE DIHYDRATE
     Indication: ASTHMA
     Dosage: 640 MCG, TWO TIMES A DAY
     Route: 055

REACTIONS (5)
  - Gait disturbance [Unknown]
  - Osteoarthritis [Unknown]
  - Drug dose omission [Unknown]
  - Weight increased [Unknown]
  - Fear [Unknown]

NARRATIVE: CASE EVENT DATE: 2017
